FAERS Safety Report 10174935 (Version 2)
Quarter: 2014Q2

REPORT INFORMATION
  Report Type: Spontaneous
  Country: US (occurrence: US)
  Receive Date: 20140515
  Receipt Date: 20140630
  Transmission Date: 20141212
  Serious: Yes (Death)
  Sender: FDA-Public Use
  Company Number: US-ASTELLAS-2014US005411

PATIENT
  Age: 58 Year
  Sex: Male

DRUGS (1)
  1. [NO SUSPECT PRODUCT] [Suspect]

REACTIONS (1)
  - Death [Fatal]
